FAERS Safety Report 9460885 (Version 1)
Quarter: 2013Q3

REPORT INFORMATION
  Report Type: Spontaneous
  Country: IN (occurrence: IN)
  Receive Date: 20130816
  Receipt Date: 20130816
  Transmission Date: 20140515
  Serious: Yes (Hospitalization)
  Sender: FDA-Public Use
  Company Number: IN-SUN PHARMACEUTICAL INDUSTRIES LTD-2013SUN04498

PATIENT
  Age: 52 Year
  Sex: Female

DRUGS (2)
  1. DOCETAXEL INJECTION [Suspect]
     Indication: BREAST CANCER
     Dosage: 120 MG, UNK
     Route: 042
  2. DOCETAXEL INJECTION [Suspect]
     Dosage: 20% DOSE REDUCTION
     Route: 065

REACTIONS (1)
  - Inappropriate antidiuretic hormone secretion [Recovering/Resolving]
